FAERS Safety Report 6841224-3 (Version None)
Quarter: 2010Q3

REPORT INFORMATION
  Report Type: 
  Country: None (occurrence: None)
  Receive Date: 20100714
  Receipt Date: 20070629
  Transmission Date: 20110219
  Serious: No
  Sender: FDA-Public Use
  Company Number: US-PFIZER INC-2007054160

PATIENT
  Sex: Female
  Weight: 72.727 kg

DRUGS (9)
  1. CHANTIX [Suspect]
     Indication: SMOKING CESSATION THERAPY
     Dates: start: 20070619
  2. SYNTHROID [Concomitant]
     Indication: THYROID DISORDER
  3. OXYCODONE HCL [Concomitant]
  4. LIPITOR [Concomitant]
  5. ZANAFLEX [Concomitant]
  6. ZOLOFT [Concomitant]
  7. LISINOPRIL [Concomitant]
  8. HYDROCHLOROTHIAZIDE [Concomitant]
     Indication: HYPERTENSION
  9. TRAZODONE HYDROCHLORIDE [Concomitant]
     Indication: PAIN

REACTIONS (3)
  - DIARRHOEA [None]
  - NAUSEA [None]
  - VOMITING [None]
